FAERS Safety Report 17356631 (Version 1)
Quarter: 2020Q1

REPORT INFORMATION
  Report Type: Spontaneous
  Country: JP (occurrence: JP)
  Receive Date: 20200131
  Receipt Date: 20200131
  Transmission Date: 20200409
  Serious: Yes (Death, Other)
  Sender: FDA-Public Use
  Company Number: JP-ASTRAZENECA-2020SE15755

PATIENT
  Age: 62 Year
  Sex: Female

DRUGS (1)
  1. LYNPARZA [Suspect]
     Active Substance: OLAPARIB
     Indication: BREAST CANCER
     Route: 048
     Dates: start: 20191112, end: 20191217

REACTIONS (3)
  - Altered state of consciousness [Fatal]
  - Metastases to central nervous system [Fatal]
  - Anaemia [Recovering/Resolving]

NARRATIVE: CASE EVENT DATE: 20191128
